FAERS Safety Report 6282517-0 (Version None)
Quarter: 2009Q3

REPORT INFORMATION
  Report Type: 
  Country: None (occurrence: None)
  Receive Date: 20090722
  Receipt Date: 20090722
  Transmission Date: 20100115
  Serious: Yes (Other)
  Sender: FDA-Public Use
  Company Number: None

PATIENT
  Age: 20 Year
  Sex: Male
  Weight: 105 kg

DRUGS (2)
  1. SINGULAIR [Suspect]
     Indication: ASTHMA
     Dosage: 10 MG QHS PO
     Route: 048
     Dates: start: 20070701, end: 20090716
  2. SINGULAIR [Suspect]
     Indication: RHINITIS
     Dosage: 10 MG QHS PO
     Route: 048
     Dates: start: 20070701, end: 20090716

REACTIONS (3)
  - FATIGUE [None]
  - INITIAL INSOMNIA [None]
  - POOR QUALITY SLEEP [None]
